FAERS Safety Report 8158064-8 (Version None)
Quarter: 2012Q1

REPORT INFORMATION
  Report Type: 
  Country: None (occurrence: None)
  Receive Date: 20120222
  Receipt Date: 20120216
  Transmission Date: 20120608
  Serious: Yes (Disabling)
  Sender: FDA-Public Use
  Company Number: GB-MERCK-1202GBR00108

PATIENT
  Age: 81 Year
  Sex: Male
  Weight: 81 kg

DRUGS (5)
  1. SOTALOL HYDROCHLORIDE [Concomitant]
     Route: 065
     Dates: start: 20111020
  2. DOXAZOSIN MESYLATE [Concomitant]
     Route: 065
     Dates: start: 20111020
  3. PROSCAR [Suspect]
     Route: 048
     Dates: start: 20111116
  4. WARFARIN SODIUM [Concomitant]
     Route: 065
     Dates: start: 20111020
  5. CARBOMER [Concomitant]
     Route: 065
     Dates: start: 20111020

REACTIONS (2)
  - URINARY RETENTION [None]
  - URINE FLOW DECREASED [None]
